FAERS Safety Report 5113806-0 (Version None)
Quarter: 2006Q3

REPORT INFORMATION
  Report Type: 
  Country: None (occurrence: None)
  Receive Date: 20060921
  Receipt Date: 20060915
  Transmission Date: 20061208
  Serious: Yes (Other)
  Sender: FDA-Public Use
  Company Number: GXKR2006US05712

PATIENT
  Age: 54 Year
  Sex: Female

DRUGS (7)
  1. METHYLPREDNISOLONE [Suspect]
     Indication: ASTHMA
     Dosage: 4-8 MG, QD
  2. MONTELUKAST (MONTELUKAST) [Concomitant]
  3. ALBUTEROL [Concomitant]
  4. ALENDRONATE SODIUM [Concomitant]
  5. CALCIUM (CALCIUM) [Concomitant]
  6. VITAMIN D [Concomitant]
  7. FLUTICASONE (FLUTICASONE) INHALER [Concomitant]

REACTIONS (4)
  - ANTIBODY TEST NEGATIVE [None]
  - B-LYMPHOCYTE COUNT DECREASED [None]
  - BLOOD IMMUNOGLOBULIN G DECREASED [None]
  - LYMPHOPENIA [None]
